FAERS Safety Report 4991420-5 (Version None)
Quarter: 2006Q2

REPORT INFORMATION
  Report Type: 
  Country: None (occurrence: None)
  Receive Date: 20060502
  Receipt Date: 20060419
  Transmission Date: 20061013
  Serious: Yes (Hospitalization)
  Sender: FDA-Public Use
  Company Number: TCI2005A04873

PATIENT
  Age: 45 Year
  Sex: Female

DRUGS (5)
  1. LEUPLIN FOR INJECTION KIT 1.88 (LEUPRORELIN ACETATE FOR DEPOT SUSPENSI [Suspect]
     Indication: IRON DEFICIENCY ANAEMIA
     Dosage: 1.88 MG (1.88 MG, 1 IN 28 D), SUBCUTANEOUS
     Route: 058
     Dates: start: 20050921, end: 20051128
  2. LEUPLIN FOR INJECTION KIT 1.88 (LEUPRORELIN ACETATE FOR DEPOT SUSPENSI [Suspect]
     Indication: LEUKOPENIA
     Dosage: 1.88 MG (1.88 MG, 1 IN 28 D), SUBCUTANEOUS
     Route: 058
     Dates: start: 20050921, end: 20051128
  3. LEUPLIN FOR INJECTION KIT 1.88 (LEUPRORELIN ACETATE FOR DEPOT SUSPENSI [Suspect]
     Indication: OVARIAN CYST
     Dosage: 1.88 MG (1.88 MG, 1 IN 28 D), SUBCUTANEOUS
     Route: 058
     Dates: start: 20050921, end: 20051128
  4. LEUPLIN FOR INJECTION KIT 1.88 (LEUPRORELIN ACETATE FOR DEPOT SUSPENSI [Suspect]
     Indication: RETINAL VEIN OCCLUSION
     Dosage: 1.88 MG (1.88 MG, 1 IN 28 D), SUBCUTANEOUS
     Route: 058
     Dates: start: 20050921, end: 20051128
  5. LEUPLIN FOR INJECTION KIT 1.88 (LEUPRORELIN ACETATE FOR DEPOT SUSPENSI [Suspect]
     Indication: UTERINE LEIOMYOMA
     Dosage: 1.88 MG (1.88 MG, 1 IN 28 D), SUBCUTANEOUS
     Route: 058
     Dates: start: 20050921, end: 20051128

REACTIONS (12)
  - ARTERIOSCLEROSIS [None]
  - BLOOD PRESSURE SYSTOLIC INCREASED [None]
  - DRUG DOSE OMISSION [None]
  - IRON DEFICIENCY ANAEMIA [None]
  - LEUKOPENIA [None]
  - MACULAR OEDEMA [None]
  - PERIPHERAL VASCULAR DISORDER [None]
  - RETINAL HAEMORRHAGE [None]
  - RETINAL VASCULAR DISORDER [None]
  - RETINAL VEIN OCCLUSION [None]
  - VASODILATATION [None]
  - VISUAL ACUITY REDUCED [None]
